FAERS Safety Report 16994867 (Version 1)
Quarter: 2019Q4

REPORT INFORMATION
  Report Type: Spontaneous
  Country: ZA (occurrence: ZA)
  Receive Date: 20191105
  Receipt Date: 20191105
  Transmission Date: 20200122
  Serious: Yes (Life-Threatening, Hospitalization)
  Sender: FDA-Public Use
  Company Number: NVSC2019ZA023555

PATIENT
  Age: 67 Year
  Sex: Female

DRUGS (4)
  1. PROMETHAZINE [Suspect]
     Active Substance: PROMETHAZINE HYDROCHLORIDE
     Indication: SCHIZOPHRENIA
     Dosage: 25 MG, QD
     Route: 065
  2. RISPERIDONE. [Suspect]
     Active Substance: RISPERIDONE
     Indication: SCHIZOPHRENIA
     Dosage: 0.5 MG, QD
     Route: 065
  3. FLUPHENAZINE [Suspect]
     Active Substance: FLUPHENAZINE
     Indication: SCHIZOPHRENIA
     Dosage: 12.5 MG MONTHLY
     Route: 030
  4. THIAMINE. [Suspect]
     Active Substance: THIAMINE
     Indication: SCHIZOPHRENIA
     Dosage: 100 MG, QD
     Route: 065

REACTIONS (5)
  - Blood creatinine increased [Unknown]
  - Atypical haemolytic uraemic syndrome [Unknown]
  - Hypertension [Unknown]
  - Delirium [Unknown]
  - Acute kidney injury [Unknown]
